FAERS Safety Report 25492925 (Version 1)
Quarter: 2025Q2

REPORT INFORMATION
  Report Type: Report from Study
  Country: CA (occurrence: CA)
  Receive Date: 20250630
  Receipt Date: 20250630
  Transmission Date: 20250717
  Serious: Yes (Other)
  Sender: TAKEDA
  Company Number: CA-TAKEDA-2025TUS048267

PATIENT
  Sex: Male

DRUGS (6)
  1. VEDOLIZUMAB [Suspect]
     Active Substance: VEDOLIZUMAB
     Indication: Crohn^s disease
  2. BISOPROLOL [Concomitant]
     Active Substance: BISOPROLOL
  3. PERINDOPRIL [Concomitant]
     Active Substance: PERINDOPRIL
  4. TRESIBA [Concomitant]
     Active Substance: INSULIN DEGLUDEC
  5. XIGDUO XR [Concomitant]
     Active Substance: DAPAGLIFLOZIN PROPANEDIOL\METFORMIN HYDROCHLORIDE
  6. PENTASA [Concomitant]
     Active Substance: MESALAMINE

REACTIONS (1)
  - Crohn^s disease [Not Recovered/Not Resolved]
